FAERS Safety Report 6690932-6 (Version None)
Quarter: 2010Q2

REPORT INFORMATION
  Report Type: 
  Country: None (occurrence: None)
  Receive Date: 20100421
  Receipt Date: 20100415
  Transmission Date: 20101027
  Serious: Yes (Hospitalization, Other)
  Sender: FDA-Public Use
  Company Number: JP-ABBOTT-10P-087-0630643-00

PATIENT
  Sex: Female

DRUGS (5)
  1. HUMIRA [Suspect]
     Indication: RHEUMATOID ARTHRITIS
     Route: 058
     Dates: start: 20090616
  2. SODIUM RISENDRONATE HYDRATE [Concomitant]
     Indication: OSTEOPOROSIS
     Dosage: 17.5MG/WEEK
  3. FOLIC ACID [Concomitant]
     Indication: PROPHYLAXIS
  4. FOLIC ACID [Concomitant]
     Indication: ADVERSE REACTION
  5. METHOTREXATE [Concomitant]
     Indication: RHEUMATOID ARTHRITIS
     Dosage: 4MG/WEEK

REACTIONS (3)
  - CELLULITIS [None]
  - PAIN IN EXTREMITY [None]
  - SKIN ULCER [None]
